FAERS Safety Report 11765884 (Version 1)
Quarter: 2015Q4

REPORT INFORMATION
  Report Type: Spontaneous
  Country: GB (occurrence: GB)
  Receive Date: 20151122
  Receipt Date: 20151122
  Transmission Date: 20160304
  Serious: Yes (Disabling)
  Sender: FDA-Public Use
  Company Number: GB-DEXPHARM-20152227

PATIENT
  Age: 73 Year
  Sex: Male
  Weight: 82 kg

DRUGS (7)
  1. ATORVASTATIN [Concomitant]
     Active Substance: ATORVASTATIN
  2. VALSARTAN. [Concomitant]
     Active Substance: VALSARTAN
  3. ASPIRIN. [Concomitant]
     Active Substance: ASPIRIN
  4. ATENOLOL. [Concomitant]
     Active Substance: ATENOLOL
  5. CHLORHEXIDINE [Suspect]
     Active Substance: CHLORHEXIDINE
     Indication: AORTIC ANEURYSM
     Dosage: SKIN PREP PRIOR TO SURGERY
     Route: 061
     Dates: start: 20151022
  6. ETHANOL [Suspect]
     Active Substance: ALCOHOL
     Indication: AORTIC ANEURYSM
     Dosage: ADDED TO CLEAR CHLORHEXIDINE GLUCONATE SOLUTION PRIOR TO SKIN PREP FOR SURGERY
     Dates: start: 20151022
  7. EZETIMIBE. [Concomitant]
     Active Substance: EZETIMIBE

REACTIONS (1)
  - Chemical burn of skin [Not Recovered/Not Resolved]

NARRATIVE: CASE EVENT DATE: 20151022
